FAERS Safety Report 11168389 (Version 1)
Quarter: 2015Q2

REPORT INFORMATION
  Report Type: Spontaneous
  Country: US (occurrence: None)
  Receive Date: 20150604
  Receipt Date: 20150604
  Transmission Date: 20150821
  Serious: Yes (Other)
  Sender: FDA-Public Use
  Company Number: None

PATIENT
  Age: 51 Year
  Sex: Female
  Weight: 70.31 kg

DRUGS (8)
  1. 3000 MG OMEGA 3 [Concomitant]
  2. OXYCODONE HCL [Suspect]
     Active Substance: OXYCODONE HYDROCHLORIDE
     Indication: PAIN
     Dosage: 4-5 HOURS
     Route: 048
     Dates: start: 20140723, end: 20150602
  3. OXYCODONE HCL [Suspect]
     Active Substance: OXYCODONE HYDROCHLORIDE
     Indication: RHEUMATOID ARTHRITIS
     Dosage: 4-5 HOURS
     Route: 048
     Dates: start: 20140723, end: 20150602
  4. AMLODIPINE [Concomitant]
     Active Substance: AMLODIPINE BESYLATE
  5. HUMIRA [Concomitant]
     Active Substance: ADALIMUMAB
  6. CALCIUM MULTIVITAMIN [Concomitant]
  7. VITAMIN D [Concomitant]
     Active Substance: CHOLECALCIFEROL
  8. SINGULAIR [Concomitant]
     Active Substance: MONTELUKAST SODIUM

REACTIONS (3)
  - Bladder spasm [None]
  - Hypersensitivity [None]
  - Urine output decreased [None]

NARRATIVE: CASE EVENT DATE: 20150602
